FAERS Safety Report 6025871-7 (Version None)
Quarter: 2008Q4

REPORT INFORMATION
  Report Type: 
  Country: None (occurrence: None)
  Receive Date: 20081229
  Receipt Date: 20081217
  Transmission Date: 20090506
  Serious: Yes (Hospitalization)
  Sender: FDA-Public Use
  Company Number: JPI-P-005647

PATIENT
  Age: 48 Year
  Sex: Female

DRUGS (3)
  1. XYREM [Suspect]
     Indication: INSOMNIA
     Dosage: 4.5 GM (2.25 GM, 2 IN 1 D), ORAL
     Route: 048
     Dates: start: 20081114, end: 20081208
  2. XYREM [Suspect]
     Indication: MIGRAINE
     Dosage: 4.5 GM (2.25 GM, 2 IN 1 D), ORAL
     Route: 048
     Dates: start: 20081114, end: 20081208
  3. TOPIRAMATE [Concomitant]

REACTIONS (8)
  - ABNORMAL CLOTTING FACTOR [None]
  - BONE PAIN [None]
  - CHEST DISCOMFORT [None]
  - DYSPNOEA [None]
  - HEADACHE [None]
  - MYALGIA [None]
  - SENSATION OF HEAVINESS [None]
  - THROMBOSIS [None]
